FAERS Safety Report 12751614 (Version 1)
Quarter: 2016Q3

REPORT INFORMATION
  Report Type: Spontaneous
  Country: US (occurrence: US)
  Receive Date: 20160915
  Receipt Date: 20160915
  Transmission Date: 20161109
  Serious: No
  Sender: FDA-Public Use
  Company Number: US-ASTELLAS-2015US037451

PATIENT
  Age: 65 Year
  Sex: Male

DRUGS (1)
  1. XTANDI [Suspect]
     Active Substance: ENZALUTAMIDE
     Indication: PROSTATE CANCER
     Route: 065
     Dates: start: 20150901, end: 20151116

REACTIONS (7)
  - Arthralgia [Recovering/Resolving]
  - Back pain [Recovering/Resolving]
  - Muscle twitching [Recovering/Resolving]
  - Neck pain [Not Recovered/Not Resolved]
  - Neuropathy peripheral [Recovering/Resolving]
  - Insomnia [Recovering/Resolving]
  - Hot flush [Recovering/Resolving]

NARRATIVE: CASE EVENT DATE: 201509
